FAERS Safety Report 19814867 (Version 1)
Quarter: 2021Q3

REPORT INFORMATION
  Report Type: Spontaneous
  Country: DK (occurrence: DK)
  Receive Date: 20210910
  Receipt Date: 20210910
  Transmission Date: 20211014
  Serious: Yes (Death, Congenital Anomaly)
  Sender: FDA-Public Use
  Company Number: DK-MYLANLABS-2021M1061242

PATIENT
  Sex: Female

DRUGS (1)
  1. LAMOTRIGIN ?MYLAN? [Suspect]
     Active Substance: LAMOTRIGINE
     Indication: MOOD ALTERED
     Dosage: 100 MILLIGRAM, QD (STRENGTH: 100 MG)
     Route: 064
     Dates: start: 20200323, end: 20210105

REACTIONS (4)
  - Congenital renal cyst [Fatal]
  - Foetal exposure during pregnancy [Fatal]
  - Encephalocele [Fatal]
  - Gastroschisis [Fatal]

NARRATIVE: CASE EVENT DATE: 20201101
